FAERS Safety Report 25042953 (Version 1)
Quarter: 2025Q1

REPORT INFORMATION
  Report Type: Spontaneous
  Country: US (occurrence: US)
  Receive Date: 20250305
  Receipt Date: 20250305
  Transmission Date: 20250409
  Serious: Yes (Hospitalization)
  Sender: NOVARTIS
  Company Number: US-002147023-NVSC2025US036522

PATIENT
  Sex: Male

DRUGS (3)
  1. PROMACTA [Suspect]
     Active Substance: ELTROMBOPAG OLAMINE
     Indication: Thrombocytopenia
     Dosage: 50 MG, QD
     Route: 048
     Dates: start: 202411
  2. TAGRISSO [Concomitant]
     Active Substance: OSIMERTINIB
     Indication: Lung neoplasm malignant
     Dosage: 80 MG, QD
     Route: 065
  3. TAGRISSO [Concomitant]
     Active Substance: OSIMERTINIB
     Indication: Malignant nervous system neoplasm
     Dosage: 160 MG, QD
     Route: 065

REACTIONS (1)
  - Metastases to central nervous system [Unknown]
